FAERS Safety Report 11909491 (Version 1)
Quarter: 2016Q1

REPORT INFORMATION
  Report Type: Spontaneous
  Country: US (occurrence: US)
  Receive Date: 20160112
  Receipt Date: 20160112
  Transmission Date: 20160526
  Serious: No
  Sender: FDA-Public Use
  Company Number: US-TEVA-615597USA

PATIENT
  Sex: Female

DRUGS (1)
  1. ZECUITY [Suspect]
     Active Substance: SUMATRIPTAN SUCCINATE
     Dosage: 6.25 MG/4 HOURS
     Route: 062

REACTIONS (3)
  - Drug ineffective [Unknown]
  - Application site urticaria [Unknown]
  - Application site erythema [Not Recovered/Not Resolved]
